FAERS Safety Report 18766907 (Version 1)
Quarter: 2021Q1

REPORT INFORMATION
  Report Type: Spontaneous
  Country: US (occurrence: US)
  Receive Date: 20210120
  Receipt Date: 20210120
  Transmission Date: 20210419
  Serious: Yes (Hospitalization)
  Sender: FDA-Public Use
  Company Number: None

PATIENT
  Age: 69 Year
  Sex: Male
  Weight: 102.6 kg

DRUGS (6)
  1. JARDIANCE [Suspect]
     Active Substance: EMPAGLIFLOZIN
     Indication: TYPE 2 DIABETES MELLITUS
     Route: 048
     Dates: start: 20200723, end: 20201216
  2. VIAGARA 100MG TABLETS [Concomitant]
     Dates: start: 20170101
  3. NITROSTAT 0.3MG SUBLINGUAL TABLETS [Concomitant]
     Dates: start: 20180815
  4. LIPITOR [Concomitant]
     Active Substance: ATORVASTATIN CALCIUM
     Dates: start: 20170101
  5. CELECOXIB 200MG [Concomitant]
     Active Substance: CELECOXIB
     Dates: start: 20180625
  6. ASPIRIN 81MG TABLETS [Concomitant]
     Dates: start: 20180911

REACTIONS (1)
  - Pancreatitis [None]

NARRATIVE: CASE EVENT DATE: 20201216
